FAERS Safety Report 20207088 (Version 5)
Quarter: 2022Q1

REPORT INFORMATION
  Report Type: Report from Study
  Country: ES (occurrence: None)
  Receive Date: 20211220
  Receipt Date: 20220217
  Transmission Date: 20220423
  Serious: Yes (Hospitalization)
  Sender: FDA-Public Use
  Company Number: ES-Eisai Medical Research-EC-2021-105281

PATIENT
  Age: 75 Year
  Sex: Female
  Weight: 65 kg

DRUGS (10)
  1. LENVATINIB [Suspect]
     Active Substance: LENVATINIB
     Indication: Endometrial cancer
     Route: 048
     Dates: start: 20211207, end: 20211209
  2. LENVATINIB [Suspect]
     Active Substance: LENVATINIB
     Route: 048
     Dates: start: 20211220
  3. PEMBROLIZUMAB [Suspect]
     Active Substance: PEMBROLIZUMAB
     Indication: Endometrial cancer
     Route: 041
     Dates: start: 20211207, end: 20211207
  4. VIBOSTOLIMAB [Suspect]
     Active Substance: VIBOSTOLIMAB
     Route: 041
     Dates: start: 20211227
  5. OMEPRAZOLE [Concomitant]
     Active Substance: OMEPRAZOLE
  6. LORAZEPAM [Concomitant]
     Active Substance: LORAZEPAM
     Dates: start: 201701
  7. DEXKETOPROFEN;TRAMADOL HYDROCHLORIDE [Concomitant]
     Dates: start: 201701
  8. ESCITALOPRAM [Concomitant]
     Active Substance: ESCITALOPRAM OXALATE
     Dates: start: 201701
  9. LEVOTHYROXINE SODIUM [Concomitant]
     Active Substance: LEVOTHYROXINE SODIUM
     Dates: start: 201701
  10. TRANEXAMIC ACID [Concomitant]
     Active Substance: TRANEXAMIC ACID
     Dates: start: 20211207

REACTIONS (1)
  - Metastases to liver [Not Recovered/Not Resolved]

NARRATIVE: CASE EVENT DATE: 20211209
